FAERS Safety Report 20972300 (Version 1)
Quarter: 2022Q2

REPORT INFORMATION
  Report Type: Spontaneous
  Country: CN (occurrence: CN)
  Receive Date: 20220616
  Receipt Date: 20220616
  Transmission Date: 20220721
  Serious: Yes (Other)
  Sender: FDA-Public Use
  Company Number: None

PATIENT
  Age: 56 Year
  Sex: Female
  Weight: 52 kg

DRUGS (4)
  1. OLANZAPINE [Suspect]
     Active Substance: OLANZAPINE
     Indication: Persecutory delusion
     Dosage: 5MG,BID
     Route: 048
     Dates: start: 20220523, end: 20220526
  2. OLANZAPINE [Suspect]
     Active Substance: OLANZAPINE
     Indication: Persecutory delusion
     Dosage: 10MG,BID
     Route: 048
     Dates: start: 20220526
  3. OLANZAPINE [Suspect]
     Active Substance: OLANZAPINE
     Dosage: 7.5MG,BID
     Route: 048
     Dates: end: 20220603
  4. LORAZEPAM [Concomitant]
     Active Substance: LORAZEPAM
     Indication: Sleep disorder
     Dosage: 0.5MG,QD
     Route: 048
     Dates: start: 20220524, end: 20220525

REACTIONS (1)
  - Hepatic function abnormal [Recovering/Resolving]

NARRATIVE: CASE EVENT DATE: 20220601
